FAERS Safety Report 16568890 (Version 2)
Quarter: 2019Q3

REPORT INFORMATION
  Report Type: Spontaneous
  Country: US (occurrence: US)
  Receive Date: 20190713
  Receipt Date: 20190718
  Transmission Date: 20191004
  Serious: No
  Sender: FDA-Public Use
  Company Number: US-JNJFOC-20190716556

PATIENT
  Age: 91 Year
  Sex: Male
  Weight: 71.73 kg

DRUGS (6)
  1. CANNABIS [Concomitant]
     Active Substance: CANNABIS SATIVA SUBSP. INDICA TOP
     Indication: ANALGESIC THERAPY
     Route: 065
  2. CALCIUM MAGNESIUM + ZINC           /01320801/ [Concomitant]
     Indication: ROUTINE HEALTH MAINTENANCE
     Route: 065
  3. R-ALPHA LIPOIC ACID [Concomitant]
     Indication: TYPE 2 DIABETES MELLITUS
     Route: 065
  4. MOTRIN IB [Suspect]
     Active Substance: IBUPROFEN
     Indication: PAIN IN EXTREMITY
     Dosage: 1 TABLET EVERY 6 HOURS
     Route: 048
  5. BERBERINE [Concomitant]
     Active Substance: BERBERINE
     Indication: PRODUCT USED FOR UNKNOWN INDICATION
     Route: 065
  6. MULTIVITAMINS                      /07504101/ [Concomitant]
     Active Substance: VITAMINS
     Indication: ROUTINE HEALTH MAINTENANCE
     Route: 065

REACTIONS (1)
  - Drug ineffective [Unknown]
